FAERS Safety Report 7804774-9 (Version None)
Quarter: 2011Q4

REPORT INFORMATION
  Report Type: 
  Country: None (occurrence: None)
  Receive Date: 20111010
  Receipt Date: 20111005
  Transmission Date: 20120403
  Serious: Yes (Death)
  Sender: FDA-Public Use
  Company Number: US-CELGENEUS-163-21880-11100627

PATIENT
  Sex: Male

DRUGS (5)
  1. REVLIMID [Suspect]
     Dosage: 10 MILLIGRAM
     Route: 048
     Dates: start: 20110201, end: 20110101
  2. REVLIMID [Suspect]
     Dosage: 25 MILLIGRAM
     Route: 048
     Dates: start: 20101101, end: 20101101
  3. REVLIMID [Suspect]
     Dosage: 40 MILLIGRAM
     Route: 048
     Dates: start: 20110101, end: 20110201
  4. REVLIMID [Suspect]
     Dosage: 50 MILLIGRAM
     Route: 048
     Dates: start: 20110101, end: 20110101
  5. REVLIMID [Suspect]
     Dosage: 35 MILLIGRAM
     Route: 048
     Dates: start: 20101101, end: 20101201

REACTIONS (1)
  - DEATH [None]
